FAERS Safety Report 6448991-1 (Version None)
Quarter: 2009Q4

REPORT INFORMATION
  Report Type: 
  Country: None (occurrence: None)
  Receive Date: 20091120
  Receipt Date: 20091117
  Transmission Date: 20100525
  Serious: Yes (Death, Other)
  Sender: FDA-Public Use
  Company Number: A0817924A

PATIENT
  Age: 79 Year
  Sex: Male

DRUGS (1)
  1. PROMACTA [Suspect]
     Indication: THROMBOCYTOPENIA
     Dosage: 25MG PER DAY
     Route: 048
     Dates: start: 20090609, end: 20090729

REACTIONS (2)
  - DEATH [None]
  - DRUG INEFFECTIVE [None]
